FAERS Safety Report 20982160 (Version 1)
Quarter: 2022Q2

REPORT INFORMATION
  Report Type: Spontaneous
  Country: AU (occurrence: AU)
  Receive Date: 20220620
  Receipt Date: 20220620
  Transmission Date: 20220721
  Serious: Yes (Other)
  Sender: FDA-Public Use
  Company Number: AU-PFIZER INC-PV202200000033

PATIENT
  Age: 38 Year
  Sex: Female

DRUGS (1)
  1. SIROLIMUS [Suspect]
     Active Substance: SIROLIMUS
     Indication: Vascular malformation
     Dosage: UNK

REACTIONS (3)
  - Lethargy [Unknown]
  - Drug intolerance [Unknown]
  - Off label use [Unknown]
